FAERS Safety Report 19667602 (Version 1)
Quarter: 2021Q3

REPORT INFORMATION
  Report Type: Spontaneous
  Country: US (occurrence: US)
  Receive Date: 20210806
  Receipt Date: 20210806
  Transmission Date: 20211014
  Serious: No
  Sender: FDA-Public Use
  Company Number: US-MAYNE PHARMA-2021MYN000009

PATIENT
  Age: 80 Year
  Sex: Male

DRUGS (4)
  1. NYSTATIN. [Suspect]
     Active Substance: NYSTATIN
     Indication: NAIL INFECTION
     Dosage: 15 G, BID
     Route: 061
     Dates: start: 2020
  2. DOXYCYCLINE. [Concomitant]
     Active Substance: DOXYCYCLINE
     Indication: NAIL INFECTION
     Dosage: 100 MG, BID
     Route: 061
     Dates: start: 2020
  3. CLINDAMYCIN. [Concomitant]
     Active Substance: CLINDAMYCIN
     Indication: NAIL INFECTION
     Dosage: 300 MG, BID
     Route: 061
     Dates: start: 2020
  4. TOLNAFTATE. [Concomitant]
     Active Substance: TOLNAFTATE
     Indication: NAIL INFECTION
     Dosage: UNK, BID
     Route: 061
     Dates: start: 2020

REACTIONS (2)
  - Drug effect less than expected [Unknown]
  - Product administration error [Unknown]
